FAERS Safety Report 15341066 (Version 1)
Quarter: 2018Q3

REPORT INFORMATION
  Report Type: Spontaneous
  Country: US (occurrence: US)
  Receive Date: 20180831
  Receipt Date: 20180831
  Transmission Date: 20181010
  Serious: No
  Sender: FDA-Public Use
  Company Number: US-JNJFOC-20180822218

PATIENT
  Age: 5 Decade
  Sex: Female

DRUGS (3)
  1. BACTRIM [Suspect]
     Active Substance: SULFAMETHOXAZOLE\TRIMETHOPRIM
     Indication: HIV TEST POSITIVE
     Route: 065
  2. PREZCOBIX [Suspect]
     Active Substance: COBICISTAT\DARUNAVIR ETHANOLATE
     Indication: HIV TEST POSITIVE
     Route: 048
  3. DESCOVY [Suspect]
     Active Substance: EMTRICITABINE\TENOFOVIR ALAFENAMIDE FUMARATE
     Indication: HIV TEST POSITIVE
     Route: 065

REACTIONS (5)
  - Pyrexia [Unknown]
  - Inflammation [Unknown]
  - Ocular hyperaemia [Unknown]
  - Liver function test abnormal [Recovering/Resolving]
  - Rash generalised [Recovered/Resolved]
